FAERS Safety Report 11289780 (Version 1)
Quarter: 2015Q3

REPORT INFORMATION
  Report Type: Spontaneous
  Country: US (occurrence: US)
  Receive Date: 20150721
  Receipt Date: 20150721
  Transmission Date: 20151125
  Serious: Yes (Hospitalization)
  Sender: FDA-Public Use
  Company Number: US-INCYTE CORPORATION-2015IN003457

PATIENT
  Sex: Female

DRUGS (21)
  1. FAMOTIDINE. [Concomitant]
     Active Substance: FAMOTIDINE
  2. GABAPENTIN. [Concomitant]
     Active Substance: GABAPENTIN
  3. LASIX [Concomitant]
     Active Substance: FUROSEMIDE
  4. ATENOLOL. [Concomitant]
     Active Substance: ATENOLOL
  5. HYDROMORPHONE [Concomitant]
     Active Substance: HYDROMORPHONE
  6. PREMARIN [Concomitant]
     Active Substance: ESTROGENS, CONJUGATED
  7. LYRICA [Concomitant]
     Active Substance: PREGABALIN
  8. BAYER ASPIRIN [Concomitant]
     Active Substance: ASPIRIN
  9. LEVAQUIN [Concomitant]
     Active Substance: LEVOFLOXACIN
  10. PEPCID [Concomitant]
     Active Substance: FAMOTIDINE
  11. ALEVE [Concomitant]
     Active Substance: NAPROXEN SODIUM
  12. IMODIUM [Concomitant]
     Active Substance: LOPERAMIDE HYDROCHLORIDE
  13. IRON [Concomitant]
     Active Substance: IRON
  14. ALAVERT ALLERGY [Concomitant]
     Active Substance: LORATADINE
  15. ALKA-SELTZER                       /00002701/ [Concomitant]
  16. FLONASE [Concomitant]
     Active Substance: FLUTICASONE PROPIONATE
  17. VALTREX [Concomitant]
     Active Substance: VALACYCLOVIR HYDROCHLORIDE
  18. LATANOPROST. [Concomitant]
     Active Substance: LATANOPROST
  19. VITAMIN E [Concomitant]
     Active Substance: .ALPHA.-TOCOPHEROL
  20. JAKAFI [Suspect]
     Active Substance: RUXOLITINIB
     Indication: MYELOFIBROSIS
     Dosage: 15 MG, BID
     Route: 048
     Dates: start: 20130916
  21. NORVASC [Concomitant]
     Active Substance: AMLODIPINE BESYLATE

REACTIONS (2)
  - Arthralgia [Unknown]
  - Back pain [Unknown]
